FAERS Safety Report 5040792-4 (Version None)
Quarter: 2006Q2

REPORT INFORMATION
  Report Type: 
  Country: None (occurrence: None)
  Receive Date: 20060630
  Receipt Date: 20060630
  Transmission Date: 20061013
  Serious: Yes (Hospitalization, Disabling)
  Sender: FDA-Public Use
  Company Number: None

PATIENT
  Sex: Male
  Weight: 88.8 kg

DRUGS (1)
  1. GLADASE            SMITH AND NEPHEW [Suspect]
     Indication: BURN DEBRIDEMENT
     Dosage: STANDARD       TOP
     Route: 061
     Dates: start: 20060606, end: 20060607

REACTIONS (5)
  - BLOOD PRESSURE DECREASED [None]
  - ERYTHEMA [None]
  - HEART RATE INCREASED [None]
  - HYPERSENSITIVITY [None]
  - PRURITUS [None]
